FAERS Safety Report 9933632 (Version 1)
Quarter: 2014Q1

REPORT INFORMATION
  Report Type: Report from Study
  Country: US (occurrence: US)
  Receive Date: 20140228
  Receipt Date: 20140228
  Transmission Date: 20141002
  Serious: No
  Sender: FDA-Public Use
  Company Number: US-MYLANLABS-2013S1027297

PATIENT
  Age: 22 Year
  Sex: Male
  Weight: 86.18 kg

DRUGS (4)
  1. AMNESTEEM CAPSULES [Suspect]
     Indication: ACNE CYSTIC
     Dosage: WITH FOOD
     Route: 048
     Dates: start: 20130827, end: 20130828
  2. AMNESTEEM CAPSULES [Suspect]
     Indication: ACNE CYSTIC
     Dosage: WITH FOOD
     Route: 048
     Dates: start: 201309, end: 201309
  3. AMNESTEEM CAPSULES [Suspect]
     Indication: ACNE CYSTIC
     Dosage: WITH FOOD
     Route: 048
     Dates: start: 201310, end: 20131017
  4. MULTI VIT [Concomitant]

REACTIONS (4)
  - Renal pain [Recovered/Resolved]
  - Abdominal pain [Recovered/Resolved]
  - Abdominal discomfort [Recovered/Resolved]
  - Treatment noncompliance [Recovered/Resolved]
